FAERS Safety Report 7241360-6 (Version None)
Quarter: 2011Q1

REPORT INFORMATION
  Report Type: 
  Country: None (occurrence: None)
  Receive Date: 20110120
  Receipt Date: 20110120
  Transmission Date: 20110831
  Serious: Yes (Hospitalization)
  Sender: FDA-Public Use
  Company Number: None

PATIENT
  Age: 11 Year
  Sex: Female
  Weight: 40 kg

DRUGS (4)
  1. CITALOPRAM [Concomitant]
  2. AZATHIOPRINE [Concomitant]
  3. CERTOLIZUMAB PEGOL 400MG UCB [Suspect]
     Indication: CROHN'S DISEASE
     Dosage: 400MG ONCE SQ
     Dates: start: 20101208, end: 20101208
  4. MESALAMINE [Concomitant]

REACTIONS (5)
  - STEVENS-JOHNSON SYNDROME [None]
  - STOMATITIS [None]
  - VIRAL INFECTION [None]
  - CONJUNCTIVITIS [None]
  - PYREXIA [None]
